FAERS Safety Report 6220471-8 (Version None)
Quarter: 2009Q2

REPORT INFORMATION
  Report Type: 
  Country: None (occurrence: None)
  Receive Date: 20090610
  Receipt Date: 20090604
  Transmission Date: 20091009
  Serious: Yes (Other)
  Sender: FDA-Public Use
  Company Number: ZA-JNJFOC-20090601152

PATIENT
  Age: 4 Year
  Sex: Male

DRUGS (2)
  1. RISPERDAL ORAL SOLUTION [Suspect]
     Dosage: 0.25 ML AT NIGHT AND 0.125 ML IN THE MORNING
     Route: 048
  2. RISPERDAL ORAL SOLUTION [Suspect]
     Indication: DRUG USE FOR UNKNOWN INDICATION
     Dosage: 0.35 ML AT NIGHT AND 0.25 ML IN THE MORNING
     Route: 048

REACTIONS (5)
  - ABASIA [None]
  - BODY TEMPERATURE INCREASED [None]
  - OFF LABEL USE [None]
  - PAIN IN EXTREMITY [None]
  - VIRAL INFECTION [None]
